FAERS Safety Report 12102303 (Version 1)
Quarter: 2016Q1

REPORT INFORMATION
  Report Type: Other
  Country: US (occurrence: US)
  Receive Date: 20160222
  Receipt Date: 20160222
  Transmission Date: 20160526
  Serious: No
  Sender: FDA-Public Use
  Company Number: US-ACORDA-ACO_112397_2015

PATIENT
  Sex: Female

DRUGS (3)
  1. AMPYRA [Suspect]
     Active Substance: DALFAMPRIDINE
     Indication: PRODUCT USED FOR UNKNOWN INDICATION
     Dosage: 10 MG, Q 12 HRS
     Route: 048
     Dates: start: 20100513
  2. BACLOFEN. [Concomitant]
     Active Substance: BACLOFEN
     Indication: PAIN IN EXTREMITY
  3. BACLOFEN. [Concomitant]
     Active Substance: BACLOFEN
     Indication: ARTHRALGIA
     Dosage: UNK
     Route: 065

REACTIONS (3)
  - Pain in extremity [Unknown]
  - Neuralgia [Not Recovered/Not Resolved]
  - Arthralgia [Unknown]
